FAERS Safety Report 25677397 (Version 2)
Quarter: 2025Q4

REPORT INFORMATION
  Report Type: Spontaneous
  Country: US (occurrence: US)
  Receive Date: 20250813
  Receipt Date: 20251112
  Transmission Date: 20260117
  Serious: Yes (Other)
  Sender: SANOFI AVENTIS
  Company Number: US-SA-2025SA236749

PATIENT
  Age: 13 Year
  Sex: Female

DRUGS (1)
  1. DUPIXENT [Suspect]
     Active Substance: DUPILUMAB
     Indication: Asthma
     Dosage: 300 MG, QOW
     Route: 058

REACTIONS (7)
  - Loss of consciousness [Unknown]
  - Upper-airway cough syndrome [Unknown]
  - Injection site reaction [Unknown]
  - Asthma [Unknown]
  - Arthralgia [Unknown]
  - Nasal congestion [Unknown]
  - Therapeutic response shortened [Unknown]
